FAERS Safety Report 18045089 (Version 1)
Quarter: 2020Q3

REPORT INFORMATION
  Report Type: Spontaneous
  Country: US (occurrence: US)
  Receive Date: 20200720
  Receipt Date: 20200720
  Transmission Date: 20201103
  Serious: Yes (Other)
  Sender: FDA-Public Use
  Company Number: US-PFIZER INC-2020275370

PATIENT
  Age: 67 Year
  Sex: Female

DRUGS (3)
  1. METRONIDAZOLE. [Suspect]
     Active Substance: METRONIDAZOLE
     Dosage: UNK
  2. DOXYCYCLINE HYDROCHLORIDE [Suspect]
     Active Substance: DOXYCYCLINE HYDROCHLORIDE
     Dosage: UNK
  3. MACRODANTIN [Suspect]
     Active Substance: NITROFURANTOIN
     Dosage: UNK

REACTIONS (2)
  - Oesophageal ulcer [Unknown]
  - Drug hypersensitivity [Unknown]
